FAERS Safety Report 20006635 (Version 1)
Quarter: 2021Q4

REPORT INFORMATION
  Report Type: Spontaneous
  Country: GB (occurrence: GB)
  Receive Date: 20211028
  Receipt Date: 20211028
  Transmission Date: 20220303
  Serious: Yes (Disabling, Other)
  Sender: FDA-Public Use
  Company Number: None

PATIENT
  Age: 55 Year
  Sex: Male
  Weight: 63.53 kg

DRUGS (14)
  1. OMEPRAZOLE [Suspect]
     Active Substance: OMEPRAZOLE
     Indication: Gastrooesophageal reflux disease
     Dosage: 40 MG, QD
     Dates: start: 1992, end: 201802
  2. OMEPRAZOLE [Suspect]
     Active Substance: OMEPRAZOLE
     Indication: Gastrooesophageal reflux disease
     Dosage: 20 MILLIGRAM, QD (OMEPRAZOLE CHEMO IBERICA 20 MG ONCE DAILY). 20 MG, QD
     Dates: start: 2002, end: 2017
  3. OMEPRAZOLE [Suspect]
     Active Substance: OMEPRAZOLE
     Indication: Gastrooesophageal reflux disease
     Dosage: DOSE NUMBER 1, QD
  4. OMEPRAZOLE [Suspect]
     Active Substance: OMEPRAZOLE
     Indication: Gastrooesophageal reflux disease
     Dosage: 20 MILLIGRAM (OMEPRAZOLE CHEMO IBERICA 20 MG ONCE DAILY). 20 MG, QD
     Dates: start: 2019
  5. ADCAL [Concomitant]
     Indication: Product used for unknown indication
     Dosage: 1 DOSAGE FORM, QD
     Dates: start: 201802
  6. ASPIRIN [Concomitant]
     Active Substance: ASPIRIN
     Indication: Cardiovascular event prophylaxis
     Dosage: ASPIRIN 75 MG DAILY
     Dates: start: 2001
  7. FOLIC ACID [Concomitant]
     Active Substance: FOLIC ACID
     Indication: Cardiovascular event prophylaxis
     Dosage: FOLIC ACID 800 MCG DAILY
     Dates: start: 2004
  8. RISEDRONATE SODIUM [Concomitant]
     Active Substance: RISEDRONATE SODIUM
     Indication: Product used for unknown indication
     Dosage: RISEDRONIC ACID 35 MG WEEKLY
     Dates: start: 201802
  9. ROPINIROLE [Concomitant]
     Active Substance: ROPINIROLE
     Indication: Periodic limb movement disorder
     Dosage: ROPINIROLE 2 MG TDS
     Dates: start: 2002
  10. SIMVASTATIN [Concomitant]
     Active Substance: SIMVASTATIN
     Indication: Cardiovascular event prophylaxis
     Dosage: SIMVASTATIN 40 MG DAILY
     Dates: start: 2004
  11. LEUCOVORIN CALCIUM [Suspect]
     Active Substance: LEUCOVORIN CALCIUM
     Indication: Cardiovascular disorder
     Dosage: 800 MG, QD
  12. HYDROXOCOBALAMIN [Suspect]
     Active Substance: HYDROXOCOBALAMIN
     Indication: Product used for unknown indication
     Dosage: UNK (STANDARD LOADING DOSE)
     Dates: start: 201901
  13. HYDROXOCOBALAMIN [Suspect]
     Active Substance: HYDROXOCOBALAMIN
     Dosage: UNK (TOP UP DOSE)
     Dates: start: 201904
  14. OMEPRAZOLE [Suspect]
     Active Substance: OMEPRAZOLE
     Dosage: 20 MG, QD
     Dates: start: 201812

REACTIONS (18)
  - Vitamin B12 deficiency [Unknown]
  - Neuropathy peripheral [Not Recovered/Not Resolved]
  - Osteoporosis [Not Recovered/Not Resolved]
  - Spinal compression fracture [Unknown]
  - Incorrect product administration duration [Unknown]
  - Restless legs syndrome [Not Recovered/Not Resolved]
  - Malabsorption [Not Recovered/Not Resolved]
  - Fall [Unknown]
  - Ulna fracture [Unknown]
  - Drug ineffective [Unknown]
  - Hand deformity [Unknown]
  - Peripheral sensorimotor neuropathy [Unknown]
  - Balance disorder [Unknown]
  - Hypoaesthesia [Unknown]
  - Sensory loss [Unknown]
  - Asthenia [Unknown]
  - Exercise tolerance decreased [Unknown]
  - Somnolence [Unknown]

NARRATIVE: CASE EVENT DATE: 19920101
